FAERS Safety Report 5385287-3 (Version None)
Quarter: 2007Q3

REPORT INFORMATION
  Report Type: 
  Country: None (occurrence: None)
  Receive Date: 20070709
  Receipt Date: 20070709
  Transmission Date: 20080115
  Serious: No
  Sender: FDA-Public Use
  Company Number: None

PATIENT
  Sex: Male

DRUGS (2)
  1. HALOPERIDOL [Suspect]
     Indication: BIPOLAR DISORDER
     Dosage: 5-10MG Q 6 HOURS PRN IV
     Route: 042
     Dates: start: 20070621, end: 20070623
  2. LITHIUM CARBONATE [Suspect]
     Indication: BIPOLAR DISORDER
     Dosage: 300MG DAILY PO
     Route: 048
     Dates: start: 20070621, end: 20070624

REACTIONS (3)
  - ABNORMAL BEHAVIOUR [None]
  - DYSARTHRIA [None]
  - NEUROLEPTIC MALIGNANT SYNDROME [None]
